FAERS Safety Report 11103424 (Version 1)
Quarter: 2015Q2

REPORT INFORMATION
  Report Type: Spontaneous
  Country: GB (occurrence: GB)
  Receive Date: 20150511
  Receipt Date: 20150511
  Transmission Date: 20150821
  Serious: Yes (Life-Threatening, Hospitalization, Other)
  Sender: FDA-Public Use
  Company Number: GB-ACTAVISPR-2015-09350

PATIENT
  Age: 65 Year
  Sex: Female

DRUGS (5)
  1. NALOXONE W/OXYCODONE [Suspect]
     Active Substance: NALOXONE HYDROCHLORIDE\OXYCODONE HYDROCHLORIDE
     Indication: CANCER PAIN
     Dosage: 40/80 MG IN THE MORNING AND 20/40 MG AT NIGHT, DAILY
     Route: 048
  2. OXYCODONE [Suspect]
     Active Substance: OXYCODONE
     Indication: CANCER PAIN
     Dosage: 40 MG, BID
     Route: 048
  3. OXYCODONE [Suspect]
     Active Substance: OXYCODONE
     Dosage: 80 MG, BID
     Route: 048
  4. NALOXONE W/OXYCODONE [Suspect]
     Active Substance: NALOXONE HYDROCHLORIDE\OXYCODONE HYDROCHLORIDE
     Indication: CONSTIPATION
  5. OXYCODONE [Suspect]
     Active Substance: OXYCODONE
     Dosage: 40 MG, QPM
     Route: 048

REACTIONS (8)
  - Toxicity to various agents [Recovered/Resolved]
  - Coma scale abnormal [Recovered/Resolved]
  - Myoclonus [Recovered/Resolved]
  - Intentional product misuse [Recovered/Resolved]
  - Respiratory rate decreased [Recovered/Resolved]
  - Somnolence [Recovered/Resolved]
  - Oxygen saturation decreased [Recovered/Resolved]
  - Miosis [Recovered/Resolved]
